FAERS Safety Report 5269287-X (Version None)
Quarter: 2007Q1

REPORT INFORMATION
  Report Type: 
  Country: None (occurrence: None)
  Receive Date: 20070319
  Receipt Date: 20070307
  Transmission Date: 20070707
  Serious: Yes (Other)
  Sender: FDA-Public Use
  Company Number: US-PFIZER INC-2007007027

PATIENT
  Sex: Female
  Weight: 62.6 kg

DRUGS (5)
  1. LIPITOR [Suspect]
     Indication: BLOOD CHOLESTEROL INCREASED
  2. FOSAMAX [Suspect]
  3. VITAMINS [Concomitant]
     Dates: start: 20060101
  4. LEXAPRO [Concomitant]
     Dates: start: 20060101
  5. CALCIUM [Concomitant]
     Dates: start: 20060101

REACTIONS (3)
  - ENDOMETRIAL CANCER [None]
  - NEOPLASM MALIGNANT [None]
  - RASH [None]
